FAERS Safety Report 5919315-0 (Version None)
Quarter: 2008Q4

REPORT INFORMATION
  Report Type: 
  Country: None (occurrence: None)
  Receive Date: 20081015
  Receipt Date: 20081006
  Transmission Date: 20090506
  Serious: Yes (Hospitalization, Other)
  Sender: FDA-Public Use
  Company Number: PHHY2008AT20285

PATIENT
  Age: 87 Year
  Sex: Female

DRUGS (8)
  1. CO-DIOVAN FORTE [Suspect]
     Dosage: UNK
  2. CO-DIOVAN FORTE [Suspect]
     Dosage: UNK
  3. FUROSEMID [Concomitant]
  4. DILATREND [Concomitant]
  5. SIMVASTATIN [Concomitant]
  6. DANCOR [Concomitant]
  7. MOLISIDOLAT [Concomitant]
  8. THROMBO ASS [Concomitant]

REACTIONS (3)
  - BLOOD CREATININE INCREASED [None]
  - HYPERNATRAEMIA [None]
  - RENAL IMPAIRMENT [None]
